FAERS Safety Report 5310773-1 (Version None)
Quarter: 2007Q2

REPORT INFORMATION
  Report Type: 
  Country: None (occurrence: None)
  Receive Date: 20070428
  Receipt Date: 20070418
  Transmission Date: 20071010
  Serious: Yes (Other)
  Sender: FDA-Public Use
  Company Number: GB-PFIZER INC-2007023473

PATIENT
  Age: 26 Year
  Sex: Female

DRUGS (5)
  1. FLUCONAZOLE [Suspect]
     Indication: CANDIDIASIS
     Route: 048
     Dates: start: 20070212, end: 20070226
  2. CLOTRIMAZOLE [Concomitant]
     Route: 061
  3. CLOTRIMAZOLE [Concomitant]
     Route: 067
     Dates: start: 20070207
  4. METRONIDAZOLE [Concomitant]
     Route: 048
     Dates: start: 20070207
  5. VALACYCLOVIR HCL [Concomitant]
     Route: 048
     Dates: start: 20070125, end: 20070130

REACTIONS (3)
  - BLISTER [None]
  - ERYTHEMA [None]
  - ORAL MUCOSAL BLISTERING [None]
